FAERS Safety Report 18670784 (Version 1)
Quarter: 2020Q4

REPORT INFORMATION
  Report Type: Other
  Country: FR (occurrence: FR)
  Receive Date: 20201228
  Receipt Date: 20201228
  Transmission Date: 20210114
  Serious: Yes (Disabling, Other)
  Sender: FDA-Public Use
  Company Number: FR-APOTEX-2020AP025042

PATIENT
  Age: 37 Year
  Sex: Male

DRUGS (1)
  1. DEROXAT [Suspect]
     Active Substance: PAROXETINE HYDROCHLORIDE
     Indication: ANXIETY
     Dosage: UNK NP
     Route: 048
     Dates: start: 20080201, end: 20150101

REACTIONS (2)
  - Drug use disorder [Recovered/Resolved with Sequelae]
  - Withdrawal syndrome [Recovering/Resolving]
